FAERS Safety Report 25348630 (Version 5)
Quarter: 2025Q4

REPORT INFORMATION
  Report Type: Report from Study
  Country: US (occurrence: None)
  Receive Date: 20250522
  Receipt Date: 20251218
  Transmission Date: 20260117
  Serious: Yes (Other)
  Sender: UCB
  Company Number: US-UCBSA-2025028682

PATIENT
  Weight: 70 kg

DRUGS (33)
  1. FENFLURAMINE [Suspect]
     Active Substance: FENFLURAMINE
     Indication: Lennox-Gastaut syndrome
     Dosage: UNK
  2. FENFLURAMINE [Suspect]
     Active Substance: FENFLURAMINE
     Indication: Seizure
     Dosage: 3 MILLILITER, 2X/DAY (BID)
  3. FENFLURAMINE [Suspect]
     Active Substance: FENFLURAMINE
     Dosage: 4 MILLILITER, 2X/DAY (BID)
     Route: 061
  4. FENFLURAMINE [Suspect]
     Active Substance: FENFLURAMINE
     Dosage: 3 MILLILITER, 2X/DAY (BID)
     Route: 061
  5. FENFLURAMINE [Suspect]
     Active Substance: FENFLURAMINE
     Dosage: 3 MILLILITER, 2X/DAY (BID)
  6. FENFLURAMINE [Suspect]
     Active Substance: FENFLURAMINE
     Dosage: 13.2 MG/DAY
  7. CLONAZEPAM [Suspect]
     Active Substance: CLONAZEPAM
     Indication: Drop attacks
     Dosage: UNK
  8. FELBAMATE [Concomitant]
     Active Substance: FELBAMATE
     Indication: Product used for unknown indication
     Dosage: 600 MILLIGRAM 2 TAB AM 2 TAB NOON AND 1 TAB PM
  9. MELATONIN [Concomitant]
     Active Substance: MELATONIN
     Indication: Product used for unknown indication
     Dosage: 7 MILLIGRAM, ONCE DAILY (QD) SURGING 5 AND 1 MG CAPS
  10. VERAPAMIL [Concomitant]
     Active Substance: VERAPAMIL HYDROCHLORIDE
     Indication: Multiple-drug resistance
     Dosage: 40 MILLIGRAM, ONCE DAILY (QD)
  11. ALBUTEROL SULFATE [Concomitant]
     Active Substance: ALBUTEROL SULFATE
     Indication: Wheezing
     Dosage: UNK INHALE TWO TO FOUR PUFFS EVERY 4 TO 6 HOURS AS NEEDED FOR WHEEZING
  12. TYLENOL [Concomitant]
     Active Substance: ACETAMINOPHEN
     Indication: Pain
     Dosage: 650 MILLIGRAM EVERY 4 HOURS AS NEEDED
  13. Dulcolax [Concomitant]
     Indication: Constipation
     Dosage: UNK INSERT ONE SUPPOSITORY RECTALLY EVERY OTHER DAY FOR CONSTIPATION
  14. BRIVIACT [Concomitant]
     Active Substance: BRIVARACETAM
     Indication: Product used for unknown indication
     Dosage: 50 MILLIGRAM, 2X/DAY (BID)
     Route: 061
  15. ZYRTEC [Concomitant]
     Active Substance: CETIRIZINE HYDROCHLORIDE
     Indication: Hypersensitivity
     Dosage: UNK TAKE 10 ML BY GASTRIC TUBE ONE TIME DAILY
  16. VITAMIN D3 [Concomitant]
     Active Substance: CHOLECALCIFEROL
     Indication: Nutritional supplementation
     Dosage: UNK TAKE 2 TABS BY MOUTH ONE TIME DAILY
     Route: 061
  17. KLONOPIN [Concomitant]
     Active Substance: CLONAZEPAM
     Indication: Product used for unknown indication
     Dosage: UNK TAKE ONE TABI .. FT BY G-TIJBF THREE TIMES A DAY
  18. Diastat) [Concomitant]
     Indication: Product used for unknown indication
     Dosage: UNK AS NEEDED INSERT 10 MG RECTALLY FOR SEIZURE LONGER THAN 3 MINUTES. MAX 1
  19. Docusate Sodiurn [Concomitant]
     Indication: Product used for unknown indication
     Dosage: UNK INSERT 1 ENEMA RECTALLY ONE TIME DAILY AS NEEDED
  20. FELBATOL [Concomitant]
     Active Substance: FELBAMATE
     Indication: Lennox-Gastaut syndrome
     Dosage: UNK TAKE 2 TABS BY MOUTH ONE TIME D?ILY M MORNING AND 2 TABS ONE TIME DAILY A: NOON AND 1 TAB ONE TIME DAILY IN EVENING
     Route: 061
  21. FLONASE [Concomitant]
     Active Substance: FLUTICASONE PROPIONATE
     Indication: Hypersensitivity
     Dosage: UNK 1 SPRAY IN EACH NOSTRIL ONE TIME DAILY
  22. MAGNESIUM CITRATE [Concomitant]
     Active Substance: MAGNESIUM CITRATE
     Indication: Prophylaxis
     Dosage: UNK GIVE 296 ML BY GASTROSTOMY TUBE ONE TIME DAILY AS NEEDED AS DIRECTED FOR BOWEL CLEANOUTS
  23. MIDAZOLAM [Concomitant]
     Active Substance: MIDAZOLAM
     Indication: Seizure
     Dosage: UNK AS NEEDED GIVE 1 SPR{1Y (5 MG) INTRANAS.ALLY FOR SEIZURE LONGTR THAN 3 RNINUTES. MAY REPEAT ONCE IN THE OTHER NOSTRIL IN ANOTHER 5 MINUTES IF STILL SE,ZING. PLEASE DISPENSE 2 SPRAYS
  24. PRILOSEC [Concomitant]
     Active Substance: OMEPRAZOLE MAGNESIUM
     Indication: Product used for unknown indication
     Dosage: UNK TAKE 1 CAP BY MOUTH ONE TIME DAILY
     Route: 061
  25. FYCOMPA [Concomitant]
     Active Substance: PERAMPANEL
     Indication: Product used for unknown indication
     Dosage: UNK GIVE 1 TABLET BY G? TUBE EVERY MORNING AND 2 TABLETS IN THE EVENING
  26. PHENOBARBITAL [Concomitant]
     Active Substance: PHENOBARBITAL
     Indication: Product used for unknown indication
     Dosage: UNK GIVE 1 TABLET IN THE MORNING, 1 TABLET IN THE AFTERNOON, AND 2 TABLETS AT NIGHT
  27. MIRALAX [Concomitant]
     Active Substance: POLYETHYLENE GLYCOL 3350
     Indication: Product used for unknown indication
     Dosage: UNK MIX AND GIVE Z CAPFULS BY GTUBE DAILY
  28. Polyvinyl Akohol [Concomitant]
     Indication: Product used for unknown indication
     Dosage: UNK DROP IN EACH EYE 1-2 TIMES DAILY AS NEEDED
  29. VITAMIN B6 [Concomitant]
     Active Substance: PYRIDOXINE HYDROCHLORIDE
     Indication: Product used for unknown indication
     Dosage: UNK TAKE 1 TABLET BY GTUBE EVERY DAY
  30. Sencxon [Concomitant]
     Indication: Constipation
     Dosage: UNK GIVE 2 TABS BY GASTROSTOMY TUBE ONE :IME DAILY GIVE 1 TABLET 1-2 TIMES DAILY FOR CONST,PATION
  31. SODIUM PHOSPHATES [Concomitant]
     Active Substance: SODIUM PHOSPHATE, DIBASIC, ANHYDROUS\SODIUM PHOSPHATE, MONOBASIC, MONOHYDRATE
     Indication: Constipation
     Dosage: UNK INSERT 1 ENEMA RECTALLY ONE TIME DAILY AS NEEDED FOR CONSTIPATION
  32. Triamdnolone Acetonide [Concomitant]
     Indication: Product used for unknown indication
     Dosage: UNK APPLY TOPICALLY 2-3 TIMES DAILY TO GRANULATION TISSUE AROUND GTUBE SITE, 2 WEEKS ON 1 WEEK OFF AS NEEDED
     Route: 048
  33. VIMPAT [Concomitant]
     Active Substance: LACOSAMIDE
     Indication: Product used for unknown indication
     Dosage: UNK TAKE ONE TABLET BY MOUTH THREE TIMES A DAY
     Route: 061

REACTIONS (12)
  - Tricuspid valve incompetence [Not Recovered/Not Resolved]
  - Mitral valve incompetence [Recovering/Resolving]
  - Pulmonary valve incompetence [Unknown]
  - Seizure [Unknown]
  - Tonic convulsion [Unknown]
  - Mitral valve prolapse [Not Recovered/Not Resolved]
  - Ear infection [Not Recovered/Not Resolved]
  - Somnolence [Not Recovered/Not Resolved]
  - Drooling [Unknown]
  - Atonic seizures [Unknown]
  - Decreased appetite [Unknown]
  - Fatigue [Not Recovered/Not Resolved]
